FAERS Safety Report 5972532-6 (Version None)
Quarter: 2008Q4

REPORT INFORMATION
  Report Type: 
  Country: None (occurrence: None)
  Receive Date: 20081201
  Receipt Date: 20081117
  Transmission Date: 20090506
  Serious: Yes (Life-Threatening)
  Sender: FDA-Public Use
  Company Number: B0546633A

PATIENT
  Age: 44 Year
  Sex: Male

DRUGS (6)
  1. EPIVIR [Suspect]
     Indication: HIV INFECTION
     Dosage: 300MG PER DAY
     Route: 048
     Dates: start: 20070101, end: 20080921
  2. AUGMENTIN '125' [Suspect]
     Dosage: 2SAC TWICE PER DAY
     Route: 048
     Dates: start: 20080915, end: 20080921
  3. HEXAQUINE [Suspect]
     Indication: MYALGIA
     Dosage: 1TAB SEE DOSAGE TEXT
     Route: 048
     Dates: start: 20080201, end: 20080921
  4. AMLOD [Suspect]
     Indication: HYPERTENSION
     Dosage: 5MG PER DAY
     Route: 048
     Dates: start: 20050101, end: 20080921
  5. RALTEGRAVIR [Concomitant]
     Indication: HIV INFECTION
     Dosage: 800MG PER DAY
     Route: 048
     Dates: start: 20080301
  6. SUSTIVA [Concomitant]
     Indication: HIV INFECTION
     Dosage: 600MG PER DAY
     Route: 048
     Dates: start: 20070101

REACTIONS (5)
  - BONE MARROW FAILURE [None]
  - BONE MARROW MYELOGRAM ABNORMAL [None]
  - COUGH [None]
  - PANCYTOPENIA [None]
  - PYREXIA [None]
